FAERS Safety Report 6337608-2 (Version None)
Quarter: 2009Q3

REPORT INFORMATION
  Report Type: 
  Country: None (occurrence: None)
  Receive Date: 20090902
  Receipt Date: 20090825
  Transmission Date: 20100115
  Serious: Yes (Other)
  Sender: FDA-Public Use
  Company Number: US-BAYER-200920539NA

PATIENT
  Age: 20 Year
  Sex: Female

DRUGS (1)
  1. MIRENA [Suspect]
     Indication: CONTRACEPTION
     Dosage: CONTINUOUS
     Route: 015
     Dates: start: 20081015

REACTIONS (6)
  - ABDOMINAL PAIN [None]
  - CERVICAL DYSPLASIA [None]
  - IUCD COMPLICATION [None]
  - OVARIAN CYST RUPTURED [None]
  - POLLAKIURIA [None]
  - PROCEDURAL PAIN [None]
